FAERS Safety Report 13365112 (Version 1)
Quarter: 2017Q1

REPORT INFORMATION
  Report Type: Report from Study
  Country: US (occurrence: US)
  Receive Date: 20170323
  Receipt Date: 20170323
  Transmission Date: 20170429
  Serious: Yes (Death, Other)
  Sender: FDA-Public Use
  Company Number: US-MYLANLABS-2017M1017919

PATIENT

DRUGS (1)
  1. OCTREOTIDE. [Suspect]
     Active Substance: OCTREOTIDE
     Indication: HYPERINSULINISM
     Dosage: FOUR TIMES A DAY
     Route: 042

REACTIONS (6)
  - Cardiomyopathy [Fatal]
  - Hypoxia [Unknown]
  - Lung disorder [Fatal]
  - Cardiopulmonary failure [Fatal]
  - Sepsis [Fatal]
  - Off label use [Unknown]
